FAERS Safety Report 9798758 (Version 1)
Quarter: 2014Q1

REPORT INFORMATION
  Report Type: Spontaneous
  Country: US (occurrence: US)
  Receive Date: 20140106
  Receipt Date: 20140106
  Transmission Date: 20141002
  Serious: Yes (Other)
  Sender: FDA-Public Use
  Company Number: US-GILEAD-2010-0030117

PATIENT
  Sex: Male
  Weight: 76.8 kg

DRUGS (14)
  1. LETAIRIS [Suspect]
     Indication: PULMONARY ARTERIAL HYPERTENSION
     Route: 048
  2. XANAX [Concomitant]
  3. UROXATRAL [Concomitant]
  4. PAXIL [Concomitant]
  5. LASIX [Concomitant]
  6. COUMADIN [Concomitant]
  7. REVATIO [Concomitant]
  8. LIPITOR [Concomitant]
  9. K-DUR [Concomitant]
  10. GABAPENTIN [Concomitant]
  11. MICARDIS [Concomitant]
  12. IRON [Concomitant]
  13. VESICARE [Concomitant]
  14. ANTARA [Concomitant]

REACTIONS (1)
  - No therapeutic response [Unknown]
